FAERS Safety Report 20460680 (Version 1)
Quarter: 2022Q1

REPORT INFORMATION
  Report Type: Spontaneous
  Country: GB (occurrence: GB)
  Receive Date: 20220211
  Receipt Date: 20220211
  Transmission Date: 20220423
  Serious: Yes (Death, Other)
  Sender: FDA-Public Use
  Company Number: GB-GILEAD-2022-0568706

PATIENT
  Sex: Male

DRUGS (1)
  1. AMBISOME [Suspect]
     Active Substance: AMPHOTERICIN B
     Indication: Bronchopulmonary aspergillosis
     Route: 065

REACTIONS (3)
  - Death [Fatal]
  - Pneumothorax spontaneous [Unknown]
  - Septic shock [Unknown]

NARRATIVE: CASE EVENT DATE: 20210501
